FAERS Safety Report 10562985 (Version 1)
Quarter: 2014Q4

REPORT INFORMATION
  Report Type: Spontaneous
  Country: US (occurrence: None)
  Receive Date: 20141103
  Receipt Date: 20141103
  Transmission Date: 20150529
  Serious: Yes (Disabling, Other)
  Sender: FDA-Public Use
  Company Number: None

PATIENT
  Age: 24 Year
  Sex: Female
  Weight: 40.82 kg

DRUGS (1)
  1. AZITHROMYCIN [Suspect]
     Active Substance: AZITHROMYCIN ANHYDROUS
     Indication: CERVICITIS
     Dosage: 1 PILL 1 PILL PRESCRIBED TAKEN BY MOUTH
     Route: 048
     Dates: start: 20130725

REACTIONS (12)
  - Diarrhoea [None]
  - Nervous system disorder [None]
  - Eructation [None]
  - Nausea [None]
  - Anxiety [None]
  - Weight decreased [None]
  - Gastrointestinal disorder [None]
  - Small intestinal bacterial overgrowth [None]
  - Quality of life decreased [None]
  - Gastrooesophageal reflux disease [None]
  - Frustration [None]
  - Malnutrition [None]

NARRATIVE: CASE EVENT DATE: 20130725
